FAERS Safety Report 9661228 (Version 1)
Quarter: 2013Q4

REPORT INFORMATION
  Report Type: Other
  Country: KR (occurrence: KR)
  Receive Date: 20131031
  Receipt Date: 20131031
  Transmission Date: 20140711
  Serious: Yes (Hospitalization)
  Sender: FDA-Public Use
  Company Number: KR-BRISTOL-MYERS SQUIBB COMPANY-19664739

PATIENT
  Age: 82 Year
  Sex: Female

DRUGS (3)
  1. METFORMIN HCL [Suspect]
  2. CIMETIDINE [Suspect]
     Indication: SPINAL COMPRESSION FRACTURE
  3. DEXIBUPROFEN [Concomitant]
     Indication: SPINAL COMPRESSION FRACTURE

REACTIONS (3)
  - Pancreatitis acute [Recovering/Resolving]
  - Renal failure acute [Recovering/Resolving]
  - Lactic acidosis [Recovering/Resolving]
